FAERS Safety Report 17206326 (Version 1)
Quarter: 2019Q4

REPORT INFORMATION
  Report Type: Spontaneous
  Country: US (occurrence: US)
  Receive Date: 20191205
  Receipt Date: 20191205
  Transmission Date: 20200122
  Serious: No
  Sender: FDA-Public Use
  Company Number: None

PATIENT
  Age: 32 Year
  Sex: Female

DRUGS (1)
  1. BENLYSTA [Suspect]
     Active Substance: BELIMUMAB
     Dosage: OTHER
     Route: 058
     Dates: start: 201711

REACTIONS (3)
  - Anger [None]
  - Bipolar disorder [None]
  - Mood altered [None]

NARRATIVE: CASE EVENT DATE: 20190605
